FAERS Safety Report 5339239-X (Version None)
Quarter: 2007Q2

REPORT INFORMATION
  Report Type: 
  Country: None (occurrence: None)
  Receive Date: 20070329
  Receipt Date: 20070216
  Transmission Date: 20071010
  Serious: Yes (Other)
  Sender: FDA-Public Use
  Company Number: A03200701419

PATIENT
  Age: 54 Year
  Sex: Female

DRUGS (1)
  1. AMBIEN [Suspect]
     Indication: INSOMNIA
     Dosage: 6.25 MG ONCE - ORAL
     Route: 048
     Dates: start: 20070209, end: 20070210

REACTIONS (2)
  - DRUG INEFFECTIVE [None]
  - SYNCOPE [None]
